FAERS Safety Report 7628906-0 (Version None)
Quarter: 2011Q3

REPORT INFORMATION
  Report Type: 
  Country: None (occurrence: None)
  Receive Date: 20110722
  Receipt Date: 20110715
  Transmission Date: 20111222
  Serious: Yes (Hospitalization, Other)
  Sender: FDA-Public Use
  Company Number: US-PFIZER INC-2009315009

PATIENT
  Sex: Male
  Weight: 96 kg

DRUGS (5)
  1. IBUPROFEN (ADVIL) [Suspect]
     Dosage: 400 MG, EVERY 4 HRS
     Route: 048
     Dates: start: 20091211, end: 20091226
  2. ZOCOR [Concomitant]
     Dosage: UNK
     Route: 048
     Dates: start: 20070126
  3. NYQUIL [Concomitant]
     Dosage: UNK
     Route: 048
     Dates: start: 20091218
  4. PF-04383119 [Suspect]
     Indication: OSTEOARTHRITIS
     Dosage: 10 MG, EVERY 8 WEEKS
     Route: 042
     Dates: start: 20091123, end: 20100510
  5. ALDACTAZIDE [Concomitant]
     Dosage: UNK
     Route: 048
     Dates: start: 20051011

REACTIONS (6)
  - UPPER GASTROINTESTINAL HAEMORRHAGE [None]
  - BLOOD GLUCOSE INCREASED [None]
  - WHITE BLOOD CELL COUNT INCREASED [None]
  - BLOOD UREA INCREASED [None]
  - HAEMORRHAGE [None]
  - GASTRIC ULCER [None]
